FAERS Safety Report 23201464 (Version 1)
Quarter: 2023Q4

REPORT INFORMATION
  Report Type: Spontaneous
  Country: CN (occurrence: CN)
  Receive Date: 20231118
  Receipt Date: 20231118
  Transmission Date: 20240109
  Serious: Yes (Other)
  Sender: FDA-Public Use
  Company Number: CN-SA-SAC20231113001119

PATIENT
  Age: 68 Year
  Sex: Male

DRUGS (42)
  1. OXALIPLATIN [Suspect]
     Active Substance: OXALIPLATIN
     Indication: Gastric cancer
     Dosage: UNK
     Dates: start: 20230606
  2. OXALIPLATIN [Suspect]
     Active Substance: OXALIPLATIN
     Dosage: UNK
     Dates: start: 20230614
  3. OXALIPLATIN [Suspect]
     Active Substance: OXALIPLATIN
     Dosage: UNK
     Dates: start: 20230629
  4. OXALIPLATIN [Suspect]
     Active Substance: OXALIPLATIN
     Dosage: UNK
     Dates: start: 20230706
  5. OXALIPLATIN [Suspect]
     Active Substance: OXALIPLATIN
     Dosage: UNK
     Dates: start: 20230720
  6. OXALIPLATIN [Suspect]
     Active Substance: OXALIPLATIN
     Dosage: UNK
     Dates: start: 20230727
  7. OXALIPLATIN [Suspect]
     Active Substance: OXALIPLATIN
     Dosage: UNK
     Dates: start: 20230809
  8. OXALIPLATIN [Suspect]
     Active Substance: OXALIPLATIN
     Dosage: UNK
     Dates: start: 20230816
  9. OXALIPLATIN [Suspect]
     Active Substance: OXALIPLATIN
     Dosage: 70 MG
     Dates: start: 20230907
  10. OXALIPLATIN [Suspect]
     Active Substance: OXALIPLATIN
     Dosage: 70 MG
     Dates: start: 20230916
  11. OXALIPLATIN [Suspect]
     Active Substance: OXALIPLATIN
     Dosage: 70 MG, QD
     Route: 041
     Dates: start: 20231007, end: 20231007
  12. PACLITAXEL [Concomitant]
     Active Substance: PACLITAXEL
     Indication: Gastric cancer
     Dosage: UNK
     Dates: start: 20230606
  13. PACLITAXEL [Concomitant]
     Active Substance: PACLITAXEL
     Dosage: UNK
     Dates: start: 20230614
  14. PACLITAXEL [Concomitant]
     Active Substance: PACLITAXEL
     Dosage: UNK
     Dates: start: 20230629
  15. PACLITAXEL [Concomitant]
     Active Substance: PACLITAXEL
     Dosage: UNK
     Dates: start: 20230706
  16. PACLITAXEL [Concomitant]
     Active Substance: PACLITAXEL
     Dosage: UNK
     Dates: start: 20230720
  17. PACLITAXEL [Concomitant]
     Active Substance: PACLITAXEL
     Dosage: UNK
     Dates: start: 20230727
  18. PACLITAXEL [Concomitant]
     Active Substance: PACLITAXEL
     Dosage: UNK
     Dates: start: 20230809
  19. PACLITAXEL [Concomitant]
     Active Substance: PACLITAXEL
     Dosage: UNK
     Dates: start: 20230816
  20. PACLITAXEL [Concomitant]
     Active Substance: PACLITAXEL
     Dosage: 150 MG
     Dates: start: 20230907
  21. PACLITAXEL [Concomitant]
     Active Substance: PACLITAXEL
     Dosage: 150 UNK
     Dates: start: 20230916
  22. TISLELIZUMAB [Concomitant]
     Active Substance: TISLELIZUMAB
     Indication: Neoplasm
     Dosage: UNK
     Dates: start: 20230606
  23. TISLELIZUMAB [Concomitant]
     Active Substance: TISLELIZUMAB
     Dosage: UNK
     Dates: start: 20230614
  24. TISLELIZUMAB [Concomitant]
     Active Substance: TISLELIZUMAB
     Dosage: UNK
     Dates: start: 20230629
  25. TISLELIZUMAB [Concomitant]
     Active Substance: TISLELIZUMAB
     Dosage: UNK
     Dates: start: 20230706
  26. TISLELIZUMAB [Concomitant]
     Active Substance: TISLELIZUMAB
     Dosage: UNK
     Dates: start: 20230720
  27. TISLELIZUMAB [Concomitant]
     Active Substance: TISLELIZUMAB
     Dosage: UNK
     Dates: start: 20230727
  28. TISLELIZUMAB [Concomitant]
     Active Substance: TISLELIZUMAB
     Dosage: UNK
     Dates: start: 20230809
  29. TISLELIZUMAB [Concomitant]
     Active Substance: TISLELIZUMAB
     Dosage: UNK
     Dates: start: 20230816
  30. TISLELIZUMAB [Concomitant]
     Active Substance: TISLELIZUMAB
     Dosage: 200 MG
     Dates: start: 20230907
  31. TISLELIZUMAB [Concomitant]
     Active Substance: TISLELIZUMAB
     Dosage: 200 MG
     Dates: start: 20230916
  32. GIMERACIL\OTERACIL\TEGAFUR [Concomitant]
     Active Substance: GIMERACIL\OTERACIL POTASSIUM\TEGAFUR
     Indication: Neoplasm
     Dosage: UNK
     Dates: start: 20230606
  33. GIMERACIL\OTERACIL\TEGAFUR [Concomitant]
     Active Substance: GIMERACIL\OTERACIL POTASSIUM\TEGAFUR
     Dosage: UNK
     Dates: start: 20230614
  34. GIMERACIL\OTERACIL\TEGAFUR [Concomitant]
     Active Substance: GIMERACIL\OTERACIL POTASSIUM\TEGAFUR
     Dosage: UNK
     Dates: start: 20230629
  35. GIMERACIL\OTERACIL\TEGAFUR [Concomitant]
     Active Substance: GIMERACIL\OTERACIL POTASSIUM\TEGAFUR
     Dosage: UNK
     Dates: start: 20230706
  36. GIMERACIL\OTERACIL\TEGAFUR [Concomitant]
     Active Substance: GIMERACIL\OTERACIL POTASSIUM\TEGAFUR
     Dosage: UNK
     Dates: start: 20230720
  37. GIMERACIL\OTERACIL\TEGAFUR [Concomitant]
     Active Substance: GIMERACIL\OTERACIL POTASSIUM\TEGAFUR
     Dosage: UNK
     Dates: start: 20230727
  38. GIMERACIL\OTERACIL\TEGAFUR [Concomitant]
     Active Substance: GIMERACIL\OTERACIL POTASSIUM\TEGAFUR
     Dosage: UNK
     Dates: start: 20230809
  39. GIMERACIL\OTERACIL\TEGAFUR [Concomitant]
     Active Substance: GIMERACIL\OTERACIL POTASSIUM\TEGAFUR
     Dosage: UNK
     Dates: start: 20230816
  40. GIMERACIL\OTERACIL\TEGAFUR [Concomitant]
     Active Substance: GIMERACIL\OTERACIL POTASSIUM\TEGAFUR
     Dosage: 40 MG, BID
     Dates: start: 20230907
  41. GIMERACIL\OTERACIL\TEGAFUR [Concomitant]
     Active Substance: GIMERACIL\OTERACIL POTASSIUM\TEGAFUR
     Dosage: 40 MG, BID
     Dates: start: 20230916
  42. GIMERACIL\OTERACIL\TEGAFUR [Concomitant]
     Active Substance: GIMERACIL\OTERACIL POTASSIUM\TEGAFUR
     Dosage: UNK UNK, BID
     Dates: start: 20231007

REACTIONS (2)
  - Metastases to liver [Unknown]
  - Pyrexia [Recovering/Resolving]

NARRATIVE: CASE EVENT DATE: 20230101
